FAERS Safety Report 16985922 (Version 1)
Quarter: 2019Q4

REPORT INFORMATION
  Report Type: Spontaneous
  Country: US (occurrence: US)
  Receive Date: 20191031
  Receipt Date: 20191031
  Transmission Date: 20200122
  Serious: Yes (Other)
  Sender: FDA-Public Use
  Company Number: None

PATIENT
  Age: 61 Year
  Sex: Female

DRUGS (5)
  1. METRONIDAZOLE GEL [Suspect]
     Active Substance: METRONIDAZOLE
  2. VALACYCLOVIR [Suspect]
     Active Substance: VALACYCLOVIR HYDROCHLORIDE
  3. STELARA [Suspect]
     Active Substance: USTEKINUMAB
     Indication: PSORIASIS
     Dosage: Q10-12 WEEKS
     Route: 058
     Dates: start: 20151225, end: 20180406
  4. SERTRALINE [Suspect]
     Active Substance: SERTRALINE HYDROCHLORIDE
  5. ESTRADIOL. [Suspect]
     Active Substance: ESTRADIOL

REACTIONS (3)
  - Rash [None]
  - Therapy cessation [None]
  - Neoplasm malignant [None]
